FAERS Safety Report 4523603-2 (Version None)
Quarter: 2004Q4

REPORT INFORMATION
  Report Type: 
  Country: None (occurrence: None)
  Receive Date: 20041210
  Receipt Date: 20041210
  Transmission Date: 20050328
  Serious: Yes (Hospitalization)
  Sender: FDA-Public Use
  Company Number: None

PATIENT
  Age: 61 Year
  Sex: Male
  Weight: 75.7507 kg

DRUGS (8)
  1. TAXOL [Suspect]
     Indication: TONGUE NEOPLASM MALIGNANT STAGE UNSPECIFIED
     Dosage: IV ONCE WEEKLY
     Route: 042
     Dates: start: 20041110
  2. TAXOL [Suspect]
     Indication: TONGUE NEOPLASM MALIGNANT STAGE UNSPECIFIED
     Dosage: IV ONCE WEEKLY
     Route: 042
     Dates: start: 20041117
  3. TAXOL [Suspect]
     Indication: TONGUE NEOPLASM MALIGNANT STAGE UNSPECIFIED
     Dosage: IV ONCE WEEKLY
     Route: 042
     Dates: start: 20041124
  4. CARBOPLATIN [Suspect]
     Dosage: IV ONCE WEEKLY
     Route: 042
     Dates: start: 20041110
  5. CARBOPLATIN [Suspect]
     Dosage: IV ONCE WEEKLY
     Route: 042
     Dates: start: 20041117
  6. CARBOPLATIN [Suspect]
     Dosage: IV ONCE WEEKLY
     Route: 042
     Dates: start: 20041124
  7. RADIATION [Concomitant]
  8. AMIFOSTINE [Concomitant]

REACTIONS (6)
  - BACTERIAL INFECTION [None]
  - CANDIDIASIS [None]
  - DYSPNOEA [None]
  - HYPOTENSION [None]
  - PSEUDOMONAS INFECTION [None]
  - SEPSIS [None]
